FAERS Safety Report 17014280 (Version 1)
Quarter: 2019Q4

REPORT INFORMATION
  Report Type: Other
  Country: GB (occurrence: GB)
  Receive Date: 20191111
  Receipt Date: 20191111
  Transmission Date: 20200122
  Serious: Yes (Hospitalization, Other)
  Sender: FDA-Public Use
  Company Number: GB-EMCURE PHARMACEUTICALS LTD-2019-EPL-1023

PATIENT
  Age: 70 Year
  Sex: Female
  Weight: 24.3 kg

DRUGS (17)
  1. CODEINE [Concomitant]
     Active Substance: CODEINE
  2. HYDROXOCOBALAMIN [Concomitant]
     Active Substance: HYDROXOCOBALAMIN
  3. IBUPROFEN. [Concomitant]
     Active Substance: IBUPROFEN
  4. LACTULOSE. [Concomitant]
     Active Substance: LACTULOSE
  5. DOXYCYCLINE HYDROCHLORIDE [Concomitant]
     Active Substance: DOXYCYCLINE HYDROCHLORIDE
  6. SERTRALINE HYDROCHLORIDE. [Suspect]
     Active Substance: SERTRALINE HYDROCHLORIDE
     Indication: DEPRESSION
     Dosage: 50 MILLIGRAM, QD
     Route: 048
     Dates: start: 20180205, end: 20180208
  7. OMEPRAZOLE. [Concomitant]
     Active Substance: OMEPRAZOLE
  8. RANITIDINE HYDROCHLORIDE. [Concomitant]
     Active Substance: RANITIDINE HYDROCHLORIDE
  9. TIOTROPIUM [Concomitant]
     Active Substance: TIOTROPIUM
  10. PARACETAMOL [Concomitant]
     Active Substance: ACETAMINOPHEN
  11. NICOTINE. [Concomitant]
     Active Substance: NICOTINE
  12. PREDNISOLONE. [Concomitant]
     Active Substance: PREDNISOLONE
  13. DOCUSATE [Concomitant]
     Active Substance: DOCUSATE
  14. TRIMBOW [Concomitant]
     Active Substance: BECLOMETHASONE DIPROPIONATE\FORMOTEROL FUMARATE\GLYCOPYRROLATE
     Dosage: INHALER
     Route: 055
  15. ALENDRONIC ACID [Concomitant]
     Active Substance: ALENDRONIC ACID
  16. SALBUTAMOL [Concomitant]
     Active Substance: ALBUTEROL
  17. QUININE [Concomitant]
     Active Substance: QUININE

REACTIONS (2)
  - Pneumonia [Unknown]
  - Hyponatraemia [Unknown]

NARRATIVE: CASE EVENT DATE: 20180208
